FAERS Safety Report 11636656 (Version 2)
Quarter: 2015Q4

REPORT INFORMATION
  Report Type: Spontaneous
  Country: IT (occurrence: IT)
  Receive Date: 20151016
  Receipt Date: 20151112
  Transmission Date: 20160304
  Serious: Yes (Other)
  Sender: FDA-Public Use
  Company Number: IT-ACTAVIS-2015-22124

PATIENT
  Age: 76 Year
  Sex: Male
  Weight: 84 kg

DRUGS (7)
  1. FLUOROURACIL                       /00098802/ [Suspect]
     Active Substance: FLUOROURACIL
     Dosage: 4560 MG, CYCLICAL
     Route: 041
     Dates: start: 20150126, end: 20150327
  2. OMNIC [Concomitant]
     Active Substance: TAMSULOSIN HYDROCHLORIDE
     Indication: PRODUCT USED FOR UNKNOWN INDICATION
     Dosage: UNK, UNKNOWN
     Route: 065
  3. LEVOFOLINIC ACID [Concomitant]
     Active Substance: LEVOLEUCOVORIN
     Dosage: 380 MG, UNKNOWN
     Route: 042
     Dates: start: 20150126, end: 20150327
  4. AVASTIN [Suspect]
     Active Substance: BEVACIZUMAB
     Indication: COLON CANCER METASTATIC
     Dosage: 420 MG, CYCLICAL
     Route: 042
     Dates: start: 20150126, end: 20150327
  5. FLUOROURACIL                       /00098802/ [Suspect]
     Active Substance: FLUOROURACIL
     Indication: COLON CANCER METASTATIC
     Dosage: 760 MG, CYCLICAL
     Route: 042
     Dates: start: 20150126, end: 20150327
  6. CARDIOASPIRIN [Concomitant]
     Active Substance: ASPIRIN
     Indication: PRODUCT USED FOR UNKNOWN INDICATION
     Dosage: UNK, UNKNOWN
     Route: 065
  7. OXALIPLATIN (UNKNOWN) [Suspect]
     Active Substance: OXALIPLATIN
     Indication: COLON CANCER METASTATIC
     Dosage: 120 MG, CYCLICAL
     Route: 042
     Dates: start: 20150126, end: 20150327

REACTIONS (5)
  - Hypertensive crisis [Recovering/Resolving]
  - Epistaxis [Recovering/Resolving]
  - Resting tremor [Recovering/Resolving]
  - Thrombocytopenia [Recovering/Resolving]
  - Neutropenia [Recovering/Resolving]

NARRATIVE: CASE EVENT DATE: 20150210
